FAERS Safety Report 11708033 (Version 1)
Quarter: 2015Q4

REPORT INFORMATION
  Report Type: Spontaneous
  Country: US (occurrence: US)
  Receive Date: 20151104
  Receipt Date: 20151104
  Transmission Date: 20160304
  Serious: No
  Sender: FDA-Public Use
  Company Number: US-ELI_LILLY_AND_COMPANY-US201108003433

PATIENT
  Age: 69 Year
  Sex: Female

DRUGS (4)
  1. ANALGESICS [Concomitant]
     Active Substance: UNSPECIFIED INGREDIENT
     Indication: COMPLEX REGIONAL PAIN SYNDROME
  2. FORTEO [Suspect]
     Active Substance: TERIPARATIDE
     Indication: OSTEOPOROSIS
     Dosage: 20 UG, QD
     Dates: start: 20110727, end: 20110729
  3. FORTEO [Suspect]
     Active Substance: TERIPARATIDE
     Dosage: 20 UG, QD
     Dates: start: 20110806, end: 201108
  4. FORTEO [Suspect]
     Active Substance: TERIPARATIDE
     Dosage: 20 UG, QD
     Dates: start: 20110802, end: 20110802

REACTIONS (4)
  - Pain in extremity [Unknown]
  - Vomiting [Unknown]
  - Crying [Unknown]
  - Nausea [Unknown]

NARRATIVE: CASE EVENT DATE: 20110727
